FAERS Safety Report 8592502-1 (Version None)
Quarter: 2012Q3

REPORT INFORMATION
  Report Type: 
  Country: None (occurrence: None)
  Receive Date: 20120814
  Receipt Date: 20120808
  Transmission Date: 20120928
  Serious: Yes (Hospitalization)
  Sender: FDA-Public Use
  Company Number: GB-009507513-1208GBR004754

PATIENT

DRUGS (3)
  1. ZOCOR [Suspect]
     Route: 048
  2. CLOZAPINE [Suspect]
     Indication: SCHIZOPHRENIA
     Dosage: UNK
     Route: 048
     Dates: start: 20120731
  3. FELODIPINE [Suspect]

REACTIONS (1)
  - CEREBROVASCULAR ACCIDENT [None]
